FAERS Safety Report 4355785-X (Version None)
Quarter: 2004Q2

REPORT INFORMATION
  Report Type: 
  Country: None (occurrence: None)
  Receive Date: 20040510
  Receipt Date: 20040510
  Transmission Date: 20050107
  Serious: Yes (Life-Threatening, Hospitalization)
  Sender: FDA-Public Use
  Company Number: None

PATIENT
  Sex: Male
  Weight: 81.6475 kg

DRUGS (3)
  1. BEECHWOOD CREOSOTE MENTHOL INH [Suspect]
     Dates: start: 20020218
  2. BEECHWOOD CREOSOTE MENTHOL INH [Suspect]
     Dates: start: 20020225
  3. BEECHWOOD CREOSOTE MENTHOL INH [Suspect]
     Dates: start: 20020228

REACTIONS (3)
  - HENOCH-SCHONLEIN PURPURA [None]
  - HEPATIC FAILURE [None]
  - RENAL FAILURE [None]
